FAERS Safety Report 6286102-6 (Version None)
Quarter: 2009Q3

REPORT INFORMATION
  Report Type: 
  Country: None (occurrence: None)
  Receive Date: 20090728
  Receipt Date: 20090720
  Transmission Date: 20100115
  Serious: Yes (Hospitalization, Other)
  Sender: FDA-Public Use
  Company Number: NO-ROCHE-473150

PATIENT
  Sex: Female

DRUGS (6)
  1. ROCEPHIN [Suspect]
     Dosage: FORM: POWDER FOR INFUSION.
     Route: 042
     Dates: start: 20060913, end: 20060926
  2. LEVOTHYROXINE SODIUM [Concomitant]
     Indication: METABOLIC DISORDER
     Dosage: DRUG NAME REPORTED AS THYROXINE NOS.
     Route: 048
     Dates: start: 19910101
  3. TRAMADOL HCL [Concomitant]
     Indication: HEADACHE
     Route: 048
     Dates: start: 20060101, end: 20060101
  4. DOXYLIN [Concomitant]
     Route: 048
     Dates: start: 20060927, end: 20061010
  5. ENOXAPARIN SODIUM [Concomitant]
     Route: 058
  6. ACETAMINOPHEN [Concomitant]
     Dosage: DRUG REPORTED AS: PARECET

REACTIONS (14)
  - ALANINE AMINOTRANSFERASE INCREASED [None]
  - BLOOD CREATININE INCREASED [None]
  - EYE SWELLING [None]
  - FATIGUE [None]
  - GAMMA-GLUTAMYLTRANSFERASE INCREASED [None]
  - GENERAL PHYSICAL HEALTH DETERIORATION [None]
  - GENERALISED ERYTHEMA [None]
  - HEADACHE [None]
  - NAUSEA [None]
  - PAIN [None]
  - PYREXIA [None]
  - RASH PRURITIC [None]
  - STOMATITIS [None]
  - THIRST [None]
